FAERS Safety Report 5571890-4 (Version None)
Quarter: 2007Q4

REPORT INFORMATION
  Report Type: 
  Country: None (occurrence: None)
  Receive Date: 20071219
  Receipt Date: 20071213
  Transmission Date: 20080405
  Serious: Yes (Hospitalization)
  Sender: FDA-Public Use
  Company Number: 2007SP024898

PATIENT
  Age: 61 Year
  Sex: Female
  Weight: 60.3 kg

DRUGS (4)
  1. TEMOZOLOMIDE [Suspect]
     Indication: GLIOBLASTOMA MULTIFORME
     Dosage: QD; PO; QD; PO; 300 MG; QD; PO; 300 MG; QD; PO
     Route: 048
     Dates: start: 20070320, end: 20070430
  2. TEMOZOLOMIDE [Suspect]
     Indication: GLIOBLASTOMA MULTIFORME
     Dosage: QD; PO; QD; PO; 300 MG; QD; PO; 300 MG; QD; PO
     Route: 048
     Dates: start: 20070525, end: 20070529
  3. TEMOZOLOMIDE [Suspect]
     Indication: GLIOBLASTOMA MULTIFORME
     Dosage: QD; PO; QD; PO; 300 MG; QD; PO; 300 MG; QD; PO
     Route: 048
     Dates: start: 20070622, end: 20070626
  4. TEMOZOLOMIDE [Suspect]
     Indication: GLIOBLASTOMA MULTIFORME
     Dosage: QD; PO; QD; PO; 300 MG; QD; PO; 300 MG; QD; PO
     Route: 048
     Dates: start: 20071109

REACTIONS (3)
  - HERPES ZOSTER [None]
  - NEURALGIA [None]
  - WHITE BLOOD CELL COUNT DECREASED [None]
